FAERS Safety Report 6440128-8 (Version None)
Quarter: 2009Q4

REPORT INFORMATION
  Report Type: 
  Country: None (occurrence: None)
  Receive Date: 20091113
  Receipt Date: 20090123
  Transmission Date: 20100525
  Serious: No
  Sender: FDA-Public Use
  Company Number: A0763605A

PATIENT
  Age: 60 Year
  Sex: Female

DRUGS (10)
  1. COREG [Suspect]
     Dosage: 18.75MG TWICE PER DAY
     Route: 048
     Dates: start: 20071201
  2. CARVEDILOL [Suspect]
     Dosage: 18.75MG TWICE PER DAY
     Route: 048
     Dates: start: 20081001
  3. ALTACE [Concomitant]
  4. SPIRONOLACTONE [Concomitant]
  5. PROTONIX [Concomitant]
  6. LASIX [Concomitant]
  7. PLAVIX [Concomitant]
  8. ZOCOR [Concomitant]
  9. LOVAZA [Concomitant]
  10. DIGOXIN [Concomitant]
     Dates: start: 20090112

REACTIONS (6)
  - DECREASED ACTIVITY [None]
  - FATIGUE [None]
  - GENERAL PHYSICAL HEALTH DETERIORATION [None]
  - HEART RATE INCREASED [None]
  - HEART RATE IRREGULAR [None]
  - MUSCULAR WEAKNESS [None]
